FAERS Safety Report 6482076-3 (Version None)
Quarter: 2009Q4

REPORT INFORMATION
  Report Type: 
  Country: None (occurrence: None)
  Receive Date: 20091208
  Receipt Date: 20090409
  Transmission Date: 20100525
  Serious: No
  Sender: FDA-Public Use
  Company Number: US-AMGEN-KDL342321

PATIENT
  Sex: Male

DRUGS (1)
  1. ENBREL [Suspect]
     Indication: PSORIASIS
     Route: 058
     Dates: start: 20031001

REACTIONS (7)
  - CYSTITIS [None]
  - FATIGUE [None]
  - INJECTION SITE PAIN [None]
  - NEPHROLITHIASIS [None]
  - PROSTATOMEGALY [None]
  - SCLERAL HAEMORRHAGE [None]
  - WHITE BLOOD CELL COUNT DECREASED [None]
